FAERS Safety Report 13001769 (Version 2)
Quarter: 2016Q4

REPORT INFORMATION
  Report Type: Report from Study
  Country: US (occurrence: US)
  Receive Date: 20161206
  Receipt Date: 20161207
  Transmission Date: 20170207
  Serious: No
  Sender: FDA-Public Use
  Company Number: US-ASTRAZENECA-2016SF21621

PATIENT
  Age: 851 Month
  Sex: Female
  Weight: 73.9 kg

DRUGS (13)
  1. LEVOTHYROXINE. [Concomitant]
     Active Substance: LEVOTHYROXINE
     Indication: THYROID DISORDER
     Route: 048
  2. ALPRAZOLAM. [Concomitant]
     Active Substance: ALPRAZOLAM
     Indication: HYPERTENSION
     Route: 048
     Dates: start: 2010
  3. GLUCOSAMINE [Concomitant]
     Active Substance: GLUCOSAMINE
     Indication: ARTHROPATHY
     Route: 048
  4. FISH OIL [Concomitant]
     Active Substance: FISH OIL
     Indication: GENERAL PHYSICAL HEALTH DETERIORATION
     Dosage: 1200.0MG UNKNOWN
     Route: 048
  5. DIOVAN [Concomitant]
     Active Substance: VALSARTAN
     Indication: HYPERTENSION
     Dosage: 160-25MG, 1AM - 1PM DAILY
     Route: 048
     Dates: start: 201510
  6. FOLIC ACID. [Concomitant]
     Active Substance: FOLIC ACID
     Indication: MUSCLE SPASMS
     Dosage: 800.0MG UNKNOWN
     Route: 048
  7. CRESTOR [Suspect]
     Active Substance: ROSUVASTATIN CALCIUM
     Indication: BLOOD CHOLESTEROL ABNORMAL
     Route: 048
     Dates: start: 201510
  8. ELIQUIS [Concomitant]
     Active Substance: APIXABAN
     Indication: THROMBOSIS
     Route: 048
     Dates: start: 201609
  9. ASPIRIN. [Concomitant]
     Active Substance: ASPIRIN
     Indication: BLOOD DISORDER
     Route: 048
  10. VITAMIN B12 [Concomitant]
     Active Substance: CYANOCOBALAMIN
     Indication: PERNICIOUS ANAEMIA
     Dosage: ONE INJECTION EVERY TWO WEEKS
  11. ATENOLOL. [Suspect]
     Active Substance: ATENOLOL
     Indication: HYPERTENSION
     Route: 048
     Dates: start: 2000
  12. CALCIUM [Concomitant]
     Active Substance: CALCIUM
     Indication: GENERAL PHYSICAL HEALTH DETERIORATION
     Dosage: 500 D3
     Route: 048
  13. MAGNESIUM [Concomitant]
     Active Substance: MAGNESIUM
     Indication: MUSCLE SPASMS
     Dosage: 250.0MG UNKNOWN
     Route: 048

REACTIONS (6)
  - Muscle enzyme increased [Unknown]
  - Drug dose omission [Not Recovered/Not Resolved]
  - Hypothyroidism [Unknown]
  - Thrombosis [Unknown]
  - Hyperthyroidism [Unknown]
  - Blood cholesterol [Unknown]

NARRATIVE: CASE EVENT DATE: 201510
